FAERS Safety Report 8484148-0 (Version None)
Quarter: 2012Q3

REPORT INFORMATION
  Report Type: 
  Country: None (occurrence: None)
  Receive Date: 20120703
  Receipt Date: 20120619
  Transmission Date: 20120928
  Serious: Yes (Death, Other)
  Sender: FDA-Public Use
  Company Number: CH-RANBAXY-2011RR-45217

PATIENT
  Age: 67 Year
  Sex: Male

DRUGS (37)
  1. ATORVASTATIN [Suspect]
     Dosage: 40 MG, UNK
     Route: 048
     Dates: end: 20100716
  2. ACETAMINOPHEN [Concomitant]
     Indication: PRODUCT USED FOR UNKNOWN INDICATION
     Dosage: 500 MG, QID, 2 DOSES
     Route: 065
     Dates: end: 20100720
  3. FUROSEMIDE [Concomitant]
     Indication: POLYURIA
     Route: 065
  4. METOLAZONE [Concomitant]
     Indication: POLYURIA
     Dosage: UNK
     Route: 065
  5. PIPERACILLIN AND TAZOBACTAM [Concomitant]
     Indication: WOUND INFECTION
     Route: 065
  6. FENTANYL CITRATE [Concomitant]
     Indication: ANALGESIC THERAPY
     Dosage: UNK
     Route: 065
     Dates: end: 20100720
  7. HALOPERIDOL [Concomitant]
     Indication: PRODUCT USED FOR UNKNOWN INDICATION
     Dosage: UNK
     Route: 065
     Dates: end: 20100720
  8. AMIODARONE HYDROCHLORIDE [Suspect]
     Indication: ATRIAL FIBRILLATION
     Dosage: UNK
     Route: 042
     Dates: end: 20100720
  9. ACETAMINOPHEN [Concomitant]
     Indication: ANALGESIC THERAPY
     Dosage: UNK
     Route: 065
     Dates: end: 20100720
  10. METOCLOPRAMIDE [Concomitant]
     Indication: CONSTIPATION
     Dosage: UNK
     Route: 065
     Dates: end: 20100720
  11. CASPOFUNGIN ACETATE [Concomitant]
     Indication: OSTEOMYELITIS FUNGAL
     Route: 065
  12. ATORVASTATIN [Suspect]
     Indication: PRODUCT USED FOR UNKNOWN INDICATION
     Dosage: 80 MG, QD
     Route: 065
  13. TORSEMIDE [Concomitant]
     Indication: PRODUCT USED FOR UNKNOWN INDICATION
     Dosage: 10 MG, QD, 2 DOSES
     Route: 065
  14. ESOMEPRAZOLE [Concomitant]
     Indication: PRODUCT USED FOR UNKNOWN INDICATION
     Dosage: 40 MG, QD
     Route: 065
  15. DALTEPARIN SODIUM [Concomitant]
     Indication: PRODUCT USED FOR UNKNOWN INDICATION
     Dosage: 500 IU, QD
     Route: 058
     Dates: end: 20100720
  16. TRAMADOL HCL [Concomitant]
     Indication: ANALGESIC THERAPY
     Dosage: UNK
     Route: 065
     Dates: end: 20100720
  17. MORPHINE [Concomitant]
     Indication: ANALGESIC THERAPY
     Dosage: UNK
     Route: 065
     Dates: end: 20100720
  18. METAMIZOLE [Concomitant]
     Indication: ANALGESIC THERAPY
     Dosage: UNK
     Route: 065
     Dates: end: 20100720
  19. ALLOPURINOL [Concomitant]
     Indication: PRODUCT USED FOR UNKNOWN INDICATION
     Dosage: 100 MG, QD
     Route: 065
     Dates: end: 20100720
  20. DOBUTAMINE HCL [Concomitant]
     Indication: ATRIAL FIBRILLATION
     Dosage: UNK
     Route: 042
     Dates: end: 20100720
  21. FLUCONAZOLE [Suspect]
     Indication: OSTEOMYELITIS FUNGAL
     Dosage: 400 MG/DAY
     Route: 042
     Dates: start: 20100715, end: 20100720
  22. IBUTILIDE [Concomitant]
     Indication: ATRIAL FIBRILLATION
     Dosage: UNK
     Route: 042
     Dates: end: 20100720
  23. TIOTROPIUM BROMIDE [Concomitant]
     Indication: PRODUCT USED FOR UNKNOWN INDICATION
     Dosage: UNK
     Route: 055
     Dates: end: 20100720
  24. IPRATROPIUM BROMIDE [Concomitant]
     Indication: PRODUCT USED FOR UNKNOWN INDICATION
     Dosage: UNK
     Route: 055
     Dates: end: 20100720
  25. RIFAMPICIN [Concomitant]
     Indication: CANDIDA OSTEOMYELITIS
     Dosage: 450 MG, BID
     Route: 048
  26. QUETIAPINE [Concomitant]
     Indication: PRODUCT USED FOR UNKNOWN INDICATION
     Dosage: UNK
     Route: 065
     Dates: end: 20100720
  27. RAMIPRIL [Concomitant]
     Indication: PRODUCT USED FOR UNKNOWN INDICATION
     Dosage: UNK
     Route: 065
     Dates: end: 20100720
  28. HEPARIN [Concomitant]
     Indication: PRODUCT USED FOR UNKNOWN INDICATION
     Dosage: 10000 IU, QD
     Route: 065
     Dates: end: 20100720
  29. POTASSIUM CANRENOATE [Concomitant]
     Indication: POLYURIA
     Dosage: UNK
     Route: 065
     Dates: end: 20100720
  30. POTASSIUM CHLORIDE [Concomitant]
     Indication: PRODUCT USED FOR UNKNOWN INDICATION
     Dosage: UNK, PRN
     Route: 048
     Dates: end: 20100720
  31. DICLOFENAC SODIUM [Concomitant]
     Indication: ANALGESIC THERAPY
     Dosage: UNK
     Route: 065
     Dates: end: 20100720
  32. AMOXICILLIN AND CLAVULANATE POTASSIUM [Concomitant]
     Indication: WOUND INFECTION
     Dosage: UNK
     Route: 065
     Dates: end: 20100720
  33. METOCLOPRAMIDE [Concomitant]
     Indication: ABDOMINAL DISTENSION
  34. PANTOPRAZOLE [Concomitant]
     Indication: PRODUCT USED FOR UNKNOWN INDICATION
     Dosage: 40 MG, UNK
     Route: 042
     Dates: end: 20100720
  35. INSULIN [Concomitant]
     Indication: BLOOD GLUCOSE ABNORMAL
     Dosage: UNK
     Route: 065
     Dates: end: 20100720
  36. IMIPENEM [Concomitant]
     Indication: WOUND INFECTION
     Dosage: 500 MG, UNK
     Route: 065
  37. CALCIUM [Concomitant]
     Indication: HYPOCALCAEMIA
     Dosage: UNK
     Route: 065

REACTIONS (4)
  - MYOPATHY [None]
  - DRUG INTERACTION [None]
  - RHABDOMYOLYSIS [None]
  - GOUT [None]
